FAERS Safety Report 4317162-7 (Version None)
Quarter: 2004Q1

REPORT INFORMATION
  Report Type: 
  Country: None (occurrence: None)
  Receive Date: 20040312
  Receipt Date: 20040304
  Transmission Date: 20041129
  Serious: Yes (Hospitalization)
  Sender: FDA-Public Use
  Company Number: K200400293

PATIENT
  Age: 20 Year
  Sex: Male

DRUGS (3)
  1. KEMADRIN [Suspect]
  2. CITALOPRAM [Suspect]
  3. CLOZAPINE [Concomitant]

REACTIONS (2)
  - COMA [None]
  - MULTIPLE DRUG OVERDOSE [None]
